FAERS Safety Report 16958995 (Version 7)
Quarter: 2020Q1

REPORT INFORMATION
  Report Type: Report from Study
  Country: US (occurrence: US)
  Receive Date: 20191024
  Receipt Date: 20200220
  Transmission Date: 20200409
  Serious: Yes (Hospitalization)
  Sender: FDA-Public Use
  Company Number: US-GILEAD-2019-0415024

PATIENT
  Age: 50 Year
  Sex: Female
  Weight: 119.7 kg

DRUGS (7)
  1. AXICABTAGENE CILOLEUCEL [Suspect]
     Active Substance: AXICABTAGENE CILOLEUCEL
     Indication: NON-HODGKIN^S LYMPHOMA
     Dosage: 68 ML, ONCE
     Route: 042
     Dates: start: 20190625, end: 20190625
  2. FLUDARABINE [Suspect]
     Active Substance: FLUDARABINE PHOSPHATE
     Indication: BONE MARROW CONDITIONING REGIMEN
     Dosage: 71 MG, QD
     Route: 042
     Dates: start: 20190619, end: 20190621
  3. CYCLOPHOSPHAMIDE. [Suspect]
     Active Substance: CYCLOPHOSPHAMIDE
     Indication: BONE MARROW CONDITIONING REGIMEN
     Dosage: 1175 MG, QD X 3
     Route: 042
     Dates: start: 20190619, end: 20190621
  4. TRAMADOL. [Concomitant]
     Active Substance: TRAMADOL
     Dosage: 50,MG,OTHER
     Route: 048
     Dates: start: 20190619, end: 20190719
  5. PROTONIX [OMEPRAZOLE] [Concomitant]
     Active Substance: OMEPRAZOLE
  6. ONDANSETRON [Concomitant]
     Active Substance: ONDANSETRON
     Dosage: 12,MG,OTHER
     Route: 041
     Dates: start: 20190619, end: 20190621
  7. ONDANSETRON [Concomitant]
     Active Substance: ONDANSETRON
     Dosage: 8,MG,OTHER
     Route: 041
     Dates: start: 20190624, end: 20190709

REACTIONS (4)
  - Speech disorder [Recovered/Resolved]
  - Agitation [Recovered/Resolved]
  - Pyrexia [Recovered/Resolved]
  - Deep vein thrombosis [Recovered/Resolved]

NARRATIVE: CASE EVENT DATE: 20190621
